FAERS Safety Report 16235018 (Version 1)
Quarter: 2019Q2

REPORT INFORMATION
  Report Type: Spontaneous
  Country: FR (occurrence: FR)
  Receive Date: 20190424
  Receipt Date: 20190424
  Transmission Date: 20190711
  Serious: Yes (Hospitalization)
  Sender: FDA-Public Use
  Company Number: FR-CELGENEUS-FRA-20190407484

PATIENT
  Age: 60 Year
  Sex: Male
  Weight: 110 kg

DRUGS (6)
  1. ZELITREX [Concomitant]
     Active Substance: VALACYCLOVIR HYDROCHLORIDE
     Indication: ANTIVIRAL PROPHYLAXIS
     Dosage: 500 MILLIGRAM
     Route: 048
     Dates: start: 20190207, end: 20190226
  2. VIDAZA [Suspect]
     Active Substance: AZACITIDINE
     Indication: ACUTE MYELOID LEUKAEMIA
     Dosage: 166.5 MILLIGRAM
     Route: 058
     Dates: start: 20190220, end: 20190226
  3. PERINDOPRIL [Concomitant]
     Active Substance: PERINDOPRIL
     Indication: MYOCARDIAL ISCHAEMIA
     Dosage: 2 MILLIGRAM
     Route: 048
     Dates: start: 20190215, end: 20190227
  4. LEVOFLOXACIN. [Concomitant]
     Active Substance: LEVOFLOXACIN
     Indication: LUNG DISORDER
     Dosage: 1000 MILLIGRAM
     Route: 048
     Dates: start: 20190222, end: 20190227
  5. FUROSEMIDE RENAUDIN [Concomitant]
     Active Substance: FUROSEMIDE
     Indication: CARDIAC FAILURE
     Dosage: 20 MG 2X PER DAY THEN 250 MG PER DAY THEN DECREASE
     Route: 042
     Dates: start: 20190223, end: 20190318
  6. PIPERACILLIN AND TAZOBACTAM [Concomitant]
     Active Substance: PIPERACILLIN SODIUM\TAZOBACTAM SODIUM
     Indication: FEBRILE NEUTROPENIA
     Dosage: 3 DOSAGE FORMS
     Route: 042
     Dates: start: 20190210, end: 20190227

REACTIONS (3)
  - Jaundice [Recovering/Resolving]
  - Acute kidney injury [Recovered/Resolved]
  - Hyperbilirubinaemia [Recovering/Resolving]

NARRATIVE: CASE EVENT DATE: 20190225
